FAERS Safety Report 6806547-2 (Version None)
Quarter: 2010Q2

REPORT INFORMATION
  Report Type: 
  Country: None (occurrence: None)
  Receive Date: 20100629
  Receipt Date: 20080430
  Transmission Date: 20101027
  Serious: No
  Sender: FDA-Public Use
  Company Number: US-PFIZER INC-2008011031

PATIENT
  Sex: Male
  Weight: 75 kg

DRUGS (5)
  1. MEDROL [Suspect]
     Indication: NEURALGIA
     Route: 048
     Dates: start: 20080201
  2. LYRICA [Concomitant]
  3. MELOXICAM [Concomitant]
  4. TETRACYCLINE [Concomitant]
  5. PANCREATIN [Concomitant]

REACTIONS (1)
  - SLEEP DISORDER [None]
